FAERS Safety Report 19580077 (Version 2)
Quarter: 2021Q3

REPORT INFORMATION
  Report Type: Spontaneous
  Country: FR (occurrence: FR)
  Receive Date: 20210720
  Receipt Date: 20210806
  Transmission Date: 20211014
  Serious: Yes (Hospitalization, Other)
  Sender: FDA-Public Use
  Company Number: FR-AUROBINDO-AUR-APL-2021-030042

PATIENT
  Age: 93 Year
  Sex: Female
  Weight: 53 kg

DRUGS (5)
  1. LOVENOX [Concomitant]
     Active Substance: ENOXAPARIN SODIUM
     Indication: THROMBOSIS PROPHYLAXIS
     Dosage: 1 INJ PAR JOUR
     Route: 058
     Dates: start: 20210607
  2. LOVENOX [Suspect]
     Active Substance: ENOXAPARIN SODIUM
     Indication: THROMBOSIS PROPHYLAXIS
  3. LOVENOX [Concomitant]
     Active Substance: ENOXAPARIN SODIUM
     Indication: BED REST
  4. SERTRALINE [Suspect]
     Active Substance: SERTRALINE HYDROCHLORIDE
     Indication: DEPRESSION
     Dosage: 25 MILLIGRAM (1 G?LULE LE MATIN)
     Route: 048
     Dates: start: 20210104, end: 20210604
  5. LOVENOX [Suspect]
     Active Substance: ENOXAPARIN SODIUM
     Indication: BED REST
     Dosage: 1 INJ PAR JOUR
     Route: 058
     Dates: start: 20210531, end: 20210601

REACTIONS (4)
  - Epistaxis [Recovered/Resolved]
  - Anaemia [Recovering/Resolving]
  - Melaena [Recovered/Resolved]
  - Haematoma [Recovering/Resolving]

NARRATIVE: CASE EVENT DATE: 20210531
